FAERS Safety Report 16661652 (Version 1)
Quarter: 2019Q3

REPORT INFORMATION
  Report Type: Spontaneous
  Country: US (occurrence: US)
  Receive Date: 20190802
  Receipt Date: 20190802
  Transmission Date: 20191004
  Serious: Yes (Hospitalization)
  Sender: FDA-Public Use
  Company Number: US-PARI RESPIRATORY EQUIPMENT, INC.-2019PAR00068

PATIENT
  Age: 4 Year
  Sex: Female

DRUGS (11)
  1. SYMBICORT [Concomitant]
     Active Substance: BUDESONIDE\FORMOTEROL FUMARATE DIHYDRATE
  2. ONFI [Concomitant]
     Active Substance: CLOBAZAM
  3. ABDEK PEDIATRIC [Concomitant]
  4. FYCOMPA [Concomitant]
     Active Substance: PERAMPANEL
  5. VITAMIN D3 [Concomitant]
     Active Substance: CHOLECALCIFEROL
  6. ZONISAMIDE. [Concomitant]
     Active Substance: ZONISAMIDE
  7. PROBIOTIC CHEWABLE CHILDREN^S [Concomitant]
  8. LEVOCARNITINE SOLUTION [Concomitant]
  9. VALPROIC ACID SOLUTION [Concomitant]
  10. KITABIS PAK [Suspect]
     Active Substance: TOBRAMYCIN
     Indication: BRONCHIECTASIS
     Dosage: 5 ML, TWICE DAILY, AS NEEDED
     Dates: start: 20190108
  11. METOCLOPRAMIDE SOLUTION [Concomitant]

REACTIONS (3)
  - Product use issue [Unknown]
  - Respiratory disorder [Unknown]
  - Product use in unapproved indication [Unknown]

NARRATIVE: CASE EVENT DATE: 20190108
